FAERS Safety Report 19415473 (Version 3)
Quarter: 2022Q1

REPORT INFORMATION
  Report Type: Report from Study
  Country: BR (occurrence: BR)
  Receive Date: 20210615
  Receipt Date: 20220221
  Transmission Date: 20220423
  Serious: Yes (Other)
  Sender: FDA-Public Use
  Company Number: NVSC2020BR295782

PATIENT
  Age: 87 Year
  Sex: Female

DRUGS (2)
  1. KISQALI [Suspect]
     Active Substance: RIBOCICLIB
     Indication: Breast cancer metastatic
     Dosage: 200 MG (1 TABLET, DAILY FOR 21 DAYS)
     Route: 048
     Dates: start: 20201027
  2. KISQALI [Suspect]
     Active Substance: RIBOCICLIB
     Dosage: 1 DF (7 DAYS REST)
     Route: 048
     Dates: start: 202009

REACTIONS (6)
  - Renal impairment [Unknown]
  - Blood creatinine abnormal [Recovered/Resolved]
  - Glomerular filtration rate abnormal [Recovered/Resolved]
  - Product prescribing issue [Unknown]
  - Blood sodium abnormal [Recovered/Resolved]
  - Blood magnesium abnormal [Recovered/Resolved]

NARRATIVE: CASE EVENT DATE: 20210401
